FAERS Safety Report 6132382-7 (Version None)
Quarter: 2009Q1

REPORT INFORMATION
  Report Type: 
  Country: None (occurrence: None)
  Receive Date: 20090325
  Receipt Date: 20090319
  Transmission Date: 20090719
  Serious: No
  Sender: FDA-Public Use
  Company Number: US-B.I. PHARMACEUTICALS,INC./RIDGEFIELD-2009-BP-03434BP

PATIENT
  Sex: Male

DRUGS (2)
  1. COMBIVENT [Suspect]
     Indication: CHRONIC OBSTRUCTIVE PULMONARY DISEASE
     Dosage: 4PUF
     Route: 055
     Dates: start: 20090215, end: 20090313
  2. COUMADIN [Concomitant]
     Indication: COAGULATION FACTOR V LEVEL DECREASED
     Dosage: 2MG
     Route: 048
     Dates: start: 20050201

REACTIONS (1)
  - MUSCLE SPASMS [None]
